FAERS Safety Report 13913106 (Version 1)
Quarter: 2017Q3

REPORT INFORMATION
  Report Type: Spontaneous
  Country: US (occurrence: US)
  Receive Date: 20170828
  Receipt Date: 20170828
  Transmission Date: 20171127
  Serious: No
  Sender: FDA-Public Use
  Company Number: US-ROCHE-1122389

PATIENT
  Age: 6 Year
  Sex: Male
  Weight: 44.95 kg

DRUGS (4)
  1. NUTROPIN AQ [Suspect]
     Active Substance: SOMATROPIN
     Indication: GROWTH HORMONE DEFICIENCY
     Dosage: 0.3 CC OF A 5 MG/CC
     Route: 058
     Dates: start: 199712
  2. DDAVP [Concomitant]
     Active Substance: DESMOPRESSIN ACETATE
     Route: 065
  3. HYDROCORTISONE. [Concomitant]
     Active Substance: HYDROCORTISONE
     Route: 065
  4. THYROID [Concomitant]
     Active Substance: LEVOTHYROXINE\LIOTHYRONINE
     Route: 065

REACTIONS (2)
  - Thyroxine decreased [Unknown]
  - Thyroxine free [Unknown]

NARRATIVE: CASE EVENT DATE: 199902
